FAERS Safety Report 22169666 (Version 1)
Quarter: 2023Q2

REPORT INFORMATION
  Report Type: Spontaneous
  Country: JP (occurrence: JP)
  Receive Date: 20230404
  Receipt Date: 20230404
  Transmission Date: 20230721
  Serious: Yes (Other)
  Sender: FDA-Public Use
  Company Number: JP-TAKEDA-2023TJP004054

PATIENT
  Sex: Male

DRUGS (4)
  1. AGRYLIN [Suspect]
     Active Substance: ANAGRELIDE HYDROCHLORIDE
     Indication: Essential thrombocythaemia
     Dosage: 1 DOSAGE FORM, BID
     Route: 048
     Dates: start: 202003, end: 2021
  2. AGRYLIN [Suspect]
     Active Substance: ANAGRELIDE HYDROCHLORIDE
     Dosage: 2 DOSAGE FORM, BID
     Route: 048
     Dates: start: 2021
  3. CILOSTAZOL [Concomitant]
     Active Substance: CILOSTAZOL
     Dosage: 1 DOSAGE FORM, BID
     Route: 048
  4. ASPIRIN [Concomitant]
     Active Substance: ASPIRIN
     Dosage: UNK
     Route: 065

REACTIONS (3)
  - Peripheral arterial occlusive disease [Unknown]
  - Platelet count increased [Unknown]
  - Labelled drug-drug interaction medication error [Unknown]
